FAERS Safety Report 5353131-6 (Version None)
Quarter: 2007Q2

REPORT INFORMATION
  Report Type: 
  Country: None (occurrence: None)
  Receive Date: 20070611
  Receipt Date: 20070608
  Transmission Date: 20071010
  Serious: Yes (Other)
  Sender: FDA-Public Use
  Company Number: JP-GENENTECH-240816

PATIENT
  Age: 47 Year
  Sex: Female

DRUGS (5)
  1. RITUXAN [Suspect]
     Indication: NON-HODGKIN'S LYMPHOMA
     Dates: start: 20070216, end: 20070409
  2. DOXORUBICIN HYDROCHLORIDE [Concomitant]
     Indication: NON-HODGKIN'S LYMPHOMA
  3. ENDOXAN [Concomitant]
     Indication: NON-HODGKIN'S LYMPHOMA
  4. ONCOVIN [Concomitant]
     Indication: NON-HODGKIN'S LYMPHOMA
  5. PREDONINE [Concomitant]
     Indication: NON-HODGKIN'S LYMPHOMA

REACTIONS (1)
  - ANAPHYLACTIC SHOCK [None]
